FAERS Safety Report 9647604 (Version 1)
Quarter: 2013Q4

REPORT INFORMATION
  Report Type: Spontaneous
  Country: CM (occurrence: CM)
  Receive Date: 20131028
  Receipt Date: 20131028
  Transmission Date: 20140711
  Serious: Yes (Hospitalization)
  Sender: FDA-Public Use
  Company Number: CM-009507513-1310CMR011690

PATIENT
  Age: 28 Year
  Sex: Female

DRUGS (9)
  1. MECTIZAN [Suspect]
     Indication: FILARIASIS LYMPHATIC
     Dosage: 3 TABLETS
     Route: 048
     Dates: start: 20130826
  2. MECTIZAN [Suspect]
     Indication: ONCHOCERCIASIS
  3. MECTIZAN [Suspect]
     Indication: FILARIASIS
  4. ALBENDAZOLE [Suspect]
     Indication: FILARIASIS LYMPHATIC
     Dosage: 1 TABLET
     Route: 048
     Dates: start: 20130826
  5. ALBENDAZOLE [Suspect]
     Indication: ONCHOCERCIASIS
  6. ALBENDAZOLE [Suspect]
     Indication: FILARIASIS
  7. NEVIRAPINE [Concomitant]
  8. STAVUDINE [Concomitant]
  9. LAMIVUDINE [Concomitant]
     Indication: HIV INFECTION

REACTIONS (4)
  - Skin exfoliation [Recovered/Resolved]
  - Dermatitis exfoliative [Recovered/Resolved]
  - Odynophagia [Recovered/Resolved]
  - Generalised oedema [Recovered/Resolved]
